FAERS Safety Report 19380151 (Version 1)
Quarter: 2021Q2

REPORT INFORMATION
  Report Type: Spontaneous
  Country: US (occurrence: US)
  Receive Date: 20210607
  Receipt Date: 20210607
  Transmission Date: 20210717
  Serious: Yes (Life-Threatening, Hospitalization, Other)
  Sender: FDA-Public Use
  Company Number: US-AUROBINDO-AUR-APL-2021-022302

PATIENT
  Age: 78 Year
  Sex: Male

DRUGS (3)
  1. METOPROLOL. [Suspect]
     Active Substance: METOPROLOL
     Indication: HYPERTENSION
     Dosage: UNK
     Route: 065
  2. RIVAROXABAN [Suspect]
     Active Substance: RIVAROXABAN
     Indication: CEREBROVASCULAR ACCIDENT
     Dosage: UNK
     Route: 065
  3. TORSEMIDE. [Suspect]
     Active Substance: TORSEMIDE
     Indication: HYPERTENSION
     Dosage: UNK
     Route: 065

REACTIONS (5)
  - Chest discomfort [Recovering/Resolving]
  - Cardiac amyloidosis [Recovering/Resolving]
  - Exercise tolerance decreased [Recovering/Resolving]
  - Dyspnoea [Recovering/Resolving]
  - Ejection fraction decreased [Recovering/Resolving]
